FAERS Safety Report 14242064 (Version 4)
Quarter: 2017Q4

REPORT INFORMATION
  Report Type: Spontaneous
  Country: NL (occurrence: NL)
  Receive Date: 20171201
  Receipt Date: 20171214
  Transmission Date: 20180321
  Serious: Yes (Other)
  Sender: FDA-Public Use
  Company Number: NL-TEVA-2017-NL-827642

PATIENT
  Age: 56 Year
  Sex: Male
  Weight: 78 kg

DRUGS (1)
  1. LOSARTAN. [Suspect]
     Active Substance: LOSARTAN
     Indication: HYPERTENSION
     Dosage: 50 MG UNK, UNK
     Route: 065
     Dates: start: 201405, end: 201612

REACTIONS (2)
  - Gastrointestinal disorder [Recovered/Resolved]
  - Coeliac disease [Unknown]

NARRATIVE: CASE EVENT DATE: 201602
